FAERS Safety Report 17939830 (Version 2)
Quarter: 2020Q3

REPORT INFORMATION
  Report Type: Spontaneous
  Country: US (occurrence: US)
  Receive Date: 20200625
  Receipt Date: 20200729
  Transmission Date: 20201103
  Serious: No
  Sender: FDA-Public Use
  Company Number: US-ADDMEDICA-202000036

PATIENT
  Age: 66 Year
  Sex: Female

DRUGS (1)
  1. SIKLOS [Suspect]
     Active Substance: HYDROXYUREA
     Indication: HAEMATOLOGICAL MALIGNANCY
     Route: 065
     Dates: start: 202002, end: 202004

REACTIONS (2)
  - Fatigue [Not Recovered/Not Resolved]
  - Dermal cyst [Not Recovered/Not Resolved]

NARRATIVE: CASE EVENT DATE: 2020
